FAERS Safety Report 12489593 (Version 2)
Quarter: 2016Q3

REPORT INFORMATION
  Report Type: Spontaneous
  Country: JP (occurrence: JP)
  Receive Date: 20160622
  Receipt Date: 20160701
  Transmission Date: 20161109
  Serious: Yes (Death, Other)
  Sender: FDA-Public Use
  Company Number: PHJP1900JP001299

PATIENT
  Age: 50 Year
  Sex: Male

DRUGS (1)
  1. DESFERAL [Suspect]
     Active Substance: DEFEROXAMINE MESYLATE
     Indication: ALUMINIUM OVERLOAD
     Dosage: 500 G, QW3
     Route: 041
     Dates: start: 19860723, end: 19860903

REACTIONS (4)
  - Sinusitis [Fatal]
  - Altered state of consciousness [Fatal]
  - Visual impairment [Fatal]
  - Cerebral artery thrombosis [Fatal]
